FAERS Safety Report 4805352-6 (Version None)
Quarter: 2005Q4

REPORT INFORMATION
  Report Type: 
  Country: None (occurrence: None)
  Receive Date: 20051020
  Receipt Date: 20050708
  Transmission Date: 20060501
  Serious: Yes (Hospitalization, Disabling, Other)
  Sender: FDA-Public Use
  Company Number: US-MERCK-0507USA01348

PATIENT
  Age: 57 Year
  Sex: Male
  Weight: 92 kg

DRUGS (9)
  1. VIOXX [Suspect]
     Indication: BACK INJURY
     Route: 048
     Dates: start: 20020716
  2. VIOXX [Suspect]
     Route: 048
     Dates: start: 20020906, end: 20020924
  3. ASPIRIN [Concomitant]
     Indication: CEREBROVASCULAR ACCIDENT PROPHYLAXIS
     Route: 065
  4. EFFEXOR [Concomitant]
     Route: 065
  5. XANAX [Concomitant]
     Route: 065
  6. SUPRAX [Concomitant]
     Route: 065
  7. DIOVAN [Concomitant]
     Route: 065
  8. VICODIN [Concomitant]
     Route: 065
  9. MOBIC [Concomitant]
     Route: 065

REACTIONS (13)
  - ACCIDENT [None]
  - AORTIC VALVE DISEASE [None]
  - ARTHROPATHY [None]
  - CARDIAC DISORDER [None]
  - CARDIAC MURMUR [None]
  - CEREBROVASCULAR ACCIDENT [None]
  - DIZZINESS [None]
  - DYSPNOEA [None]
  - HEADACHE [None]
  - HYPOAESTHESIA [None]
  - PAIN IN EXTREMITY [None]
  - TRANSIENT ISCHAEMIC ATTACK [None]
  - VISION BLURRED [None]
